FAERS Safety Report 7553651-X (Version None)
Quarter: 2011Q2

REPORT INFORMATION
  Report Type: 
  Country: None (occurrence: None)
  Receive Date: 20110617
  Receipt Date: 20110222
  Transmission Date: 20111010
  Serious: No
  Sender: FDA-Public Use
  Company Number: US-MYLANLABS-2011S1003814

PATIENT
  Age: 83 Year
  Sex: Female

DRUGS (5)
  1. METOPROLOL TARTRATE [Concomitant]
  2. M.V.I. [Concomitant]
  3. PREDNISONE [Concomitant]
  4. OMEPRAZOLE [Suspect]
     Indication: GASTROOESOPHAGEAL REFLUX DISEASE
     Route: 048
     Dates: start: 20110201, end: 20110201
  5. ASPIRIN [Concomitant]
     Dosage: CHEWS TABLET
     Route: 048

REACTIONS (5)
  - HYPOAESTHESIA [None]
  - REACTION TO DRUG EXCIPIENTS [None]
  - HEADACHE [None]
  - VISION BLURRED [None]
  - BALANCE DISORDER [None]
